FAERS Safety Report 25212812 (Version 1)
Quarter: 2025Q2

REPORT INFORMATION
  Report Type: Spontaneous
  Country: US (occurrence: US)
  Receive Date: 20250418
  Receipt Date: 20250418
  Transmission Date: 20250717
  Serious: Yes (Other)
  Sender: CHURCH & DWIGHT
  Company Number: US-CHURCH AND DWIGHT-2025-CDW-00484

PATIENT

DRUGS (1)
  1. ORAJEL 4X MEDICATED FOR TOOTHACHE AND GUM, CREAM [Suspect]
     Active Substance: BENZALKONIUM CHLORIDE\BENZOCAINE\MENTHOL\ZINC CATION
     Indication: Pain
     Route: 061

REACTIONS (3)
  - Dizziness [Unknown]
  - Chest pain [Unknown]
  - Drug ineffective [Unknown]
